FAERS Safety Report 23422379 (Version 1)
Quarter: 2024Q1

REPORT INFORMATION
  Report Type: Spontaneous
  Country: US (occurrence: None)
  Receive Date: 20240118
  Receipt Date: 20240118
  Transmission Date: 20240410
  Serious: Yes (Other)
  Sender: FDA-Public Use
  Company Number: None

PATIENT
  Age: 59 Year
  Sex: Male
  Weight: 103.05 kg

DRUGS (9)
  1. TESTOSTERONE [Suspect]
     Active Substance: TESTOSTERONE
     Indication: Blood testosterone decreased
     Dosage: OTHER STRENGTH : 200/40 MG/UG MG;?
     Route: 058
     Dates: start: 20230424
  2. TESTOSTERONE [Suspect]
     Active Substance: TESTOSTERONE
     Indication: Andropause
  3. TESTOSTERONE [Suspect]
     Active Substance: TESTOSTERONE
     Indication: Fatigue
  4. TESTOSTERONE\TRIAMCINOLONE ACETONIDE [Suspect]
     Active Substance: TESTOSTERONE\TRIAMCINOLONE ACETONIDE
     Indication: Hypogonadism
     Dosage: OTHER STRENGTH : 100/20 UG/MG;?
     Route: 058
     Dates: start: 20230424
  5. TESTOSTERONE\TRIAMCINOLONE ACETONIDE [Suspect]
     Active Substance: TESTOSTERONE\TRIAMCINOLONE ACETONIDE
     Indication: Andropause
  6. TESTOSTERONE\TRIAMCINOLONE ACETONIDE [Suspect]
     Active Substance: TESTOSTERONE\TRIAMCINOLONE ACETONIDE
     Indication: Libido decreased
  7. TESTOSTERONE\TRIAMCINOLONE ACETONIDE [Suspect]
     Active Substance: TESTOSTERONE\TRIAMCINOLONE ACETONIDE
     Indication: Fatigue
  8. Testosterone / Triamcinolone Acetonide 200mg/40mcg Pellet  x 10 [Concomitant]
     Dates: start: 20230821
  9. Testosterone / Triamcinolone Acetonide 100mg/20mcg Pellet  x 1 [Concomitant]
     Dates: start: 20230821

REACTIONS (3)
  - Flank pain [None]
  - Implant site abscess [None]
  - Wound secretion [None]

NARRATIVE: CASE EVENT DATE: 20230919
